FAERS Safety Report 21620727 (Version 1)
Quarter: 2022Q4

REPORT INFORMATION
  Report Type: Spontaneous
  Country: PL (occurrence: None)
  Receive Date: 20221121
  Receipt Date: 20221121
  Transmission Date: 20230113
  Serious: Yes (Death, Life-Threatening, Hospitalization, Other)
  Sender: FDA-Public Use
  Company Number: PL-MLMSERVICE-20221108-3898785-1

PATIENT
  Age: 71 Year
  Sex: Male

DRUGS (1)
  1. METHOTREXATE [Suspect]
     Active Substance: METHOTREXATE
     Indication: Product used for unknown indication
     Dosage: WEEKLY DOSE BEING ADMINISTERED DAILY
     Route: 065

REACTIONS (10)
  - Inappropriate schedule of product administration [Fatal]
  - Anuria [Fatal]
  - Cholestasis [Fatal]
  - Tubulointerstitial nephritis [Fatal]
  - Acute kidney injury [Fatal]
  - Toxic epidermal necrolysis [Fatal]
  - Pancytopenia [Fatal]
  - Renal tubular injury [Fatal]
  - Toxicity to various agents [Fatal]
  - Septic shock [Fatal]
